FAERS Safety Report 7159491-8 (Version None)
Quarter: 2010Q4

REPORT INFORMATION
  Report Type: 
  Country: None (occurrence: None)
  Receive Date: 20101214
  Receipt Date: 20100914
  Transmission Date: 20110411
  Serious: No
  Sender: FDA-Public Use
  Company Number: US-ASTRAZENECA-2010SE43067

PATIENT
  Sex: Female
  Weight: 70.3 kg

DRUGS (4)
  1. CRESTOR [Suspect]
     Indication: HYPERCHOLESTEROLAEMIA
     Route: 048
     Dates: start: 20040101
  2. CRESTOR [Suspect]
     Dosage: 5 MG ONE TABLET TWICE WEEKLY
     Route: 048
  3. CLONIDINE [Concomitant]
  4. COZAAR [Concomitant]

REACTIONS (3)
  - GAIT DISTURBANCE [None]
  - HYPERTENSION [None]
  - MUSCLE MASS [None]
